FAERS Safety Report 14975962 (Version 1)
Quarter: 2018Q2

REPORT INFORMATION
  Report Type: Spontaneous
  Country: US (occurrence: US)
  Receive Date: 20180605
  Receipt Date: 20180605
  Transmission Date: 20180711
  Serious: No
  Sender: FDA-Public Use
  Company Number: US-ROCHE-2025255

PATIENT
  Sex: Male

DRUGS (5)
  1. METHOTREXATE. [Concomitant]
     Active Substance: METHOTREXATE
  2. ACTEMRA [Suspect]
     Active Substance: TOCILIZUMAB
     Indication: RHEUMATOID ARTHRITIS
     Route: 065
  3. REMICADE [Concomitant]
     Active Substance: INFLIXIMAB
  4. HUMIRA [Concomitant]
     Active Substance: ADALIMUMAB
  5. ORENCIA [Concomitant]
     Active Substance: ABATACEPT

REACTIONS (1)
  - Drug intolerance [Unknown]
